FAERS Safety Report 25551208 (Version 1)
Quarter: 2025Q3

REPORT INFORMATION
  Report Type: Spontaneous
  Country: EU (occurrence: EU)
  Receive Date: 20250714
  Receipt Date: 20250714
  Transmission Date: 20251020
  Serious: Yes (Other)
  Sender: MYLAN
  Company Number: EU-MYLANLABS-2025M1057838

PATIENT
  Sex: Male

DRUGS (1)
  1. SERTRALINE [Suspect]
     Active Substance: SERTRALINE HYDROCHLORIDE
     Indication: Social anxiety disorder

REACTIONS (9)
  - Suicidal ideation [Recovered/Resolved]
  - Erectile dysfunction [Unknown]
  - Feeling abnormal [Recovered/Resolved]
  - Sleep disorder [Unknown]
  - Sedation [Recovered/Resolved]
  - Somnolence [Unknown]
  - Drug withdrawal syndrome [Unknown]
  - Depressed mood [Recovered/Resolved]
  - Anxiety [Recovered/Resolved]
